FAERS Safety Report 6287049-1 (Version None)
Quarter: 2009Q3

REPORT INFORMATION
  Report Type: 
  Country: None (occurrence: None)
  Receive Date: 20090727
  Receipt Date: 20090727
  Transmission Date: 20100115
  Serious: Yes (Hospitalization)
  Sender: FDA-Public Use
  Company Number: None

PATIENT
  Sex: Male
  Weight: 67.5 kg

DRUGS (4)
  1. CYTARABINE [Suspect]
     Dosage: 875 MG
     Dates: end: 20090607
  2. ETOPOSIDE [Suspect]
     Dosage: 175 MG
     Dates: end: 20090607
  3. MITOXANTRONE HYDROCHLORIDE [Suspect]
     Dosage: 14 MG
     Dates: end: 20090607
  4. RAPAMUNE [Suspect]
     Dosage: 4 MG
     Dates: end: 20090604

REACTIONS (1)
  - FEBRILE NEUTROPENIA [None]
